FAERS Safety Report 8187451-7 (Version None)
Quarter: 2012Q1

REPORT INFORMATION
  Report Type: 
  Country: None (occurrence: None)
  Receive Date: 20120306
  Receipt Date: 20120209
  Transmission Date: 20120608
  Serious: Yes (Other)
  Sender: FDA-Public Use
  Company Number: FR-ROCHE-1045736

PATIENT
  Age: 59 Year
  Sex: Male

DRUGS (3)
  1. ALIMTA [Concomitant]
     Indication: LUNG NEOPLASM MALIGNANT
  2. CISPLATIN [Concomitant]
     Indication: LUNG NEOPLASM MALIGNANT
  3. AVASTIN [Suspect]
     Indication: LUNG NEOPLASM MALIGNANT
     Dates: start: 20110910

REACTIONS (1)
  - ILIAC ARTERY STENOSIS [None]
